FAERS Safety Report 8237509-9 (Version None)
Quarter: 2012Q1

REPORT INFORMATION
  Report Type: 
  Country: None (occurrence: None)
  Receive Date: 20120309
  Receipt Date: 20110210
  Transmission Date: 20120608
  Serious: Yes (Hospitalization)
  Sender: FDA-Public Use
  Company Number: PHHY2010US71669

PATIENT
  Age: 50 Year
  Sex: Male

DRUGS (21)
  1. DILTIAZEM [Concomitant]
  2. ISOSORBIDE (ISOSORBIDE) [Concomitant]
  3. METFORMIN HCL [Concomitant]
  4. PLAVIX [Concomitant]
  5. TAMSULOSIN HCL [Concomitant]
  6. BUPROPION HCL [Concomitant]
  7. ADVAIR (FLUTICASONE PROPIONAT, SALMETEROL XINAFOATE) [Concomitant]
  8. ACTOS [Concomitant]
  9. BUTALBITAL [Concomitant]
  10. HYDROCODONE BITARTRATE [Concomitant]
  11. OMEPRAZOLE [Concomitant]
  12. FOLIC ACID [Concomitant]
  13. SPIRIVA [Concomitant]
  14. GLIPIZIDE [Concomitant]
  15. EXTAVIA [Suspect]
     Indication: MULTIPLE SCLEROSIS
     Dosage: 0.125 MG, QOD, SUBCUTANEOUS ; 0.25 MG, QOD, SUBCUTANEOUS
     Route: 058
     Dates: start: 20100923
  16. EXTAVIA [Suspect]
     Indication: MULTIPLE SCLEROSIS
     Dosage: 0.125 MG, QOD, SUBCUTANEOUS ; 0.25 MG, QOD, SUBCUTANEOUS
     Route: 058
     Dates: start: 20100928
  17. INSULIN (INSULIN) [Concomitant]
  18. CYCLOBENZAPRINE [Concomitant]
  19. GABAPENTIN [Concomitant]
  20. MAGNESIUM OXIDE (MAGNESIUM OXIDE) [Concomitant]
  21. SINGULAIR [Concomitant]

REACTIONS (5)
  - CHEST PAIN [None]
  - COGNITIVE DISORDER [None]
  - MALAISE [None]
  - WEIGHT INCREASED [None]
  - HEADACHE [None]
